FAERS Safety Report 4952126-1 (Version None)
Quarter: 2006Q1

REPORT INFORMATION
  Report Type: 
  Country: None (occurrence: None)
  Receive Date: 20060320
  Receipt Date: 20060307
  Transmission Date: 20060701
  Serious: Yes (Death, Life-Threatening, Hospitalization)
  Sender: FDA-Public Use
  Company Number: 2006013488

PATIENT
  Age: 51 Year
  Sex: Female
  Weight: 63 kg

DRUGS (9)
  1. LIPITOR [Suspect]
     Dosage: 10 MG (1 IN 1 D), ORAL
     Route: 048
     Dates: start: 20051125, end: 20060125
  2. PROVERA [Suspect]
     Dosage: 2.5 MG (2.5 MG, 1 IN 1D), ORAL
     Route: 048
     Dates: end: 20060125
  3. HALCION [Suspect]
  4. PREMARIN [Suspect]
     Dosage: 0.625 MG (0.625 MG, 1 IN 1 D), ORAL
     Route: 048
     Dates: start: 20051116, end: 20060125
  5. LANSOPRAZOLE [Suspect]
     Dosage: 15 MG (15 MG, 1 IN 1 D), ORAL
     Route: 048
     Dates: start: 20051125, end: 20060125
  6. ZOLPIDEM TARTRATE [Suspect]
     Dosage: 10 MG (10 MG, 1 IN 1 D), ORAL
     Route: 048
     Dates: start: 20051125, end: 20060125
  7. DORAL [Suspect]
     Dosage: ORAL
     Route: 048
     Dates: start: 20051125, end: 20060125
  8. AMOBAN (ZOPICLONE) [Concomitant]
  9. ESTAZOLAM [Concomitant]

REACTIONS (10)
  - BLOOD PRESSURE DECREASED [None]
  - COMA HEPATIC [None]
  - DIALYSIS [None]
  - HEART RATE DECREASED [None]
  - HEPATIC ENCEPHALOPATHY [None]
  - HEPATITIS FULMINANT [None]
  - HYPOGLYCAEMIA [None]
  - METABOLIC ACIDOSIS [None]
  - SYSTEMIC INFLAMMATORY RESPONSE SYNDROME [None]
  - THROMBOSIS [None]
